FAERS Safety Report 14558031 (Version 3)
Quarter: 2018Q2

REPORT INFORMATION
  Report Type: Spontaneous
  Country: JP (occurrence: JP)
  Receive Date: 20180221
  Receipt Date: 20180516
  Transmission Date: 20180711
  Serious: Yes (Hospitalization, Disabling, Other)
  Sender: FDA-Public Use
  Company Number: JP-JNJFOC-20180227803

PATIENT
  Age: 67 Year
  Sex: Male
  Weight: 55 kg

DRUGS (13)
  1. RIFAMPICIN [Concomitant]
     Active Substance: RIFAMPIN
     Indication: INFECTION PROPHYLAXIS
     Route: 048
     Dates: start: 20180202, end: 20180211
  2. MAGMITT [Concomitant]
     Active Substance: MAGNESIUM OXIDE
     Indication: CONSTIPATION
     Route: 048
     Dates: start: 20180116, end: 20180322
  3. PURSENNID [Concomitant]
     Active Substance: SENNOSIDES A AND B
     Indication: CONSTIPATION
     Route: 048
     Dates: start: 20180116, end: 20180322
  4. XARELTO [Suspect]
     Active Substance: RIVAROXABAN
     Indication: THROMBOSIS PROPHYLAXIS
     Route: 048
     Dates: start: 20180115, end: 20180211
  5. REBAMIPIDE [Concomitant]
     Active Substance: REBAMIPIDE
     Indication: PROPHYLAXIS
     Route: 048
     Dates: start: 20180120, end: 20180208
  6. XARELTO [Suspect]
     Active Substance: RIVAROXABAN
     Indication: ATRIAL FIBRILLATION
     Route: 048
     Dates: start: 20180115, end: 20180211
  7. FERROMIA [Concomitant]
     Active Substance: SODIUM FERROUS CITRATE
     Route: 065
  8. XARELTO [Suspect]
     Active Substance: RIVAROXABAN
     Indication: ATRIAL FIBRILLATION
     Route: 048
     Dates: start: 20180222, end: 20180315
  9. METHYCOBAL [Concomitant]
     Active Substance: METHYLCOBALAMIN
     Indication: NEUROLOGICAL SYMPTOM
     Route: 048
     Dates: start: 20180118, end: 20180124
  10. XARELTO [Suspect]
     Active Substance: RIVAROXABAN
     Indication: THROMBOSIS PROPHYLAXIS
     Route: 048
     Dates: start: 20180222, end: 20180315
  11. OPALMON [Concomitant]
     Active Substance: LIMAPROST
     Indication: VASCULAR INSUFFICIENCY
     Route: 048
     Dates: start: 20180120, end: 20180211
  12. LOXONIN [Concomitant]
     Active Substance: LOXOPROFEN SODIUM
     Indication: LABOUR PAIN
     Route: 048
     Dates: start: 20180120, end: 20180208
  13. LANSOPRAZOLE. [Concomitant]
     Active Substance: LANSOPRAZOLE
     Indication: HYPERCHLORHYDRIA
     Route: 048
     Dates: start: 20180116, end: 20180323

REACTIONS (5)
  - Spinal operation [Unknown]
  - Thrombocytopenia [Recovered/Resolved]
  - Post procedural haematoma [Unknown]
  - Bone graft [Unknown]
  - Chest wall haematoma [Recovered/Resolved]

NARRATIVE: CASE EVENT DATE: 20180201
